FAERS Safety Report 9929850 (Version 1)
Quarter: 2014Q1

REPORT INFORMATION
  Report Type: Report from Study
  Country: US (occurrence: US)
  Receive Date: 20140227
  Receipt Date: 20140227
  Transmission Date: 20141002
  Serious: No
  Sender: FDA-Public Use
  Company Number: US-ABBVIE-12P-163-1006923-00

PATIENT
  Age: 74 Year
  Sex: Female
  Weight: 96.7 kg

DRUGS (1)
  1. HUMIRA (ABBOTT) [Suspect]
     Indication: PSORIASIS
     Route: 058
     Dates: start: 2006

REACTIONS (1)
  - Fungal infection [Recovered/Resolved]
